FAERS Safety Report 7206835-4 (Version None)
Quarter: 2011Q1

REPORT INFORMATION
  Report Type: 
  Country: None (occurrence: None)
  Receive Date: 20110103
  Receipt Date: 20101223
  Transmission Date: 20110831
  Serious: Yes (Hospitalization, Other)
  Sender: FDA-Public Use
  Company Number: US-ELI_LILLY_AND_COMPANY-US200909002929

PATIENT
  Sex: Female

DRUGS (1)
  1. FORTEO [Suspect]
     Dosage: UNK, UNKNOWN
     Dates: start: 20090819

REACTIONS (5)
  - GENERAL PHYSICAL HEALTH DETERIORATION [None]
  - INJECTION SITE HAEMATOMA [None]
  - NEOPLASM MALIGNANT [None]
  - CONTUSION [None]
  - FATIGUE [None]
